FAERS Safety Report 17483719 (Version 2)
Quarter: 2020Q2

REPORT INFORMATION
  Report Type: Spontaneous
  Country: US (occurrence: US)
  Receive Date: 20200229
  Receipt Date: 20200603
  Transmission Date: 20200713
  Serious: Yes (Hospitalization, Other)
  Sender: FDA-Public Use
  Company Number: US-009507513-2002USA007664

PATIENT
  Age: 60 Year
  Sex: Male

DRUGS (8)
  1. TRAZODONE HYDROCHLORIDE. [Concomitant]
     Active Substance: TRAZODONE HYDROCHLORIDE
     Dosage: 50 MILLIGRAM, AT NIGHT
  2. MAVYRET [Interacting]
     Active Substance: GLECAPREVIR\PIBRENTASVIR
     Indication: CHRONIC HEPATITIS C
     Dosage: UNK
  3. TRAMADOL HYDROCHLORIDE. [Concomitant]
     Active Substance: TRAMADOL HYDROCHLORIDE
     Indication: PAIN
     Dosage: 50 MILLIGRAM, AS NEEDED
  4. FUROSEMIDE. [Concomitant]
     Active Substance: FUROSEMIDE
     Dosage: 20 MILLIGRAM, DAILY
  5. ALBUTEROL (+) IPRATROPIUM BROMIDE [Concomitant]
     Active Substance: ALBUTEROL\IPRATROPIUM BROMIDE
     Indication: DYSPNOEA
     Dosage: NEBULIZED SOLUTION AS NEEDED
     Route: 055
  6. CARVEDILOL. [Concomitant]
     Active Substance: CARVEDILOL
     Dosage: 12.5 MG, DAILY
  7. WARFARIN [Concomitant]
     Active Substance: WARFARIN
     Dosage: 4.5 MILLIGRAM, DAILY
  8. ZOCOR [Suspect]
     Active Substance: SIMVASTATIN
     Indication: CHRONIC HEPATITIS C
     Dosage: 20 MILLIGRAM, DAILY
     Route: 048
     Dates: start: 2008

REACTIONS (3)
  - Rhabdomyolysis [Recovering/Resolving]
  - Muscle necrosis [Recovering/Resolving]
  - Drug interaction [Recovering/Resolving]
